FAERS Safety Report 5331332-0 (Version None)
Quarter: 2007Q2

REPORT INFORMATION
  Report Type: 
  Country: None (occurrence: None)
  Receive Date: 20070522
  Receipt Date: 20070517
  Transmission Date: 20071010
  Serious: Yes (Other)
  Sender: FDA-Public Use
  Company Number: US-BAYER-200710294BWH

PATIENT
  Age: 66 Year
  Sex: Female

DRUGS (9)
  1. AVELOX [Suspect]
     Indication: DRUG USE FOR UNKNOWN INDICATION
     Route: 048
     Dates: start: 20070119, end: 20070126
  2. CENTRUM SILVER [Concomitant]
  3. TETANYL [Concomitant]
     Dosage: TOTAL DAILY DOSE: 25 ?G  UNIT DOSE: 25 ?G
     Route: 062
  4. XANAX [Concomitant]
  5. OXYCODONE HCL [Concomitant]
  6. PONARIS [Concomitant]
     Route: 045
  7. TESSALON [Concomitant]
     Route: 048
  8. COLACE [Concomitant]
  9. HYDREA [Concomitant]

REACTIONS (3)
  - COOMBS TEST POSITIVE [None]
  - PYREXIA [None]
  - TRANSFUSION REACTION [None]
